FAERS Safety Report 23181273 (Version 1)
Quarter: 2023Q4

REPORT INFORMATION
  Report Type: Spontaneous
  Country: US (occurrence: US)
  Receive Date: 20231114
  Receipt Date: 20231114
  Transmission Date: 20240110
  Serious: Yes (Hospitalization)
  Sender: FDA-Public Use
  Company Number: US-SANOFI US-2022SA340809

PATIENT
  Age: 78 Year
  Sex: Male

DRUGS (4)
  1. DULCOLAX (BISACODYL) [Suspect]
     Active Substance: BISACODYL
     Indication: Constipation
     Dosage: DOSE DESCRIPTION : UNK
     Route: 065
  2. POLYETHYLENE GLYCOL 3350 [Concomitant]
     Active Substance: POLYETHYLENE GLYCOL 3350
     Indication: Product used for unknown indication
     Dosage: DOSE DESCRIPTION : UNK
     Route: 065
  3. CALCIUM CARBONATE [Concomitant]
     Active Substance: CALCIUM CARBONATE
     Indication: Product used for unknown indication
     Dosage: DOSE DESCRIPTION : UNK
     Route: 065
  4. MAGNESIUM HYDROXIDE [Concomitant]
     Active Substance: MAGNESIUM HYDROXIDE
     Indication: Product used for unknown indication
     Dosage: DOSE DESCRIPTION : UNK
     Route: 065

REACTIONS (2)
  - Acquired oesophageal web [Unknown]
  - Abdominal distension [Unknown]
